FAERS Safety Report 15264524 (Version 1)
Quarter: 2018Q3

REPORT INFORMATION
  Report Type: Spontaneous
  Country: US (occurrence: US)
  Receive Date: 20180810
  Receipt Date: 20180810
  Transmission Date: 20181010
  Serious: No
  Sender: FDA-Public Use
  Company Number: US-BIOFRONTERA-000490

PATIENT
  Sex: Female

DRUGS (1)
  1. AMELUZ [Suspect]
     Active Substance: AMINOLEVULINIC ACID HYDROCHLORIDE
     Route: 061

REACTIONS (5)
  - Nausea [Recovered/Resolved]
  - Photophobia [Recovered/Resolved]
  - Influenza like illness [Recovered/Resolved]
  - Lymphadenopathy [Recovered/Resolved]
  - Off label use [Recovered/Resolved]
